FAERS Safety Report 9569866 (Version 1)
Quarter: 2013Q3

REPORT INFORMATION
  Report Type: Spontaneous
  Country: US (occurrence: US)
  Receive Date: 20130930
  Receipt Date: 20130930
  Transmission Date: 20140515
  Serious: No
  Sender: FDA-Public Use
  Company Number: US-AMGEN-USASP2013065831

PATIENT
  Age: 39 Year
  Sex: Male

DRUGS (1)
  1. ENBREL [Suspect]
     Indication: ANKYLOSING SPONDYLITIS
     Dosage: 50 MG, WEEKLY
     Route: 065
     Dates: start: 20100101

REACTIONS (5)
  - Injection site mass [Recovered/Resolved]
  - Memory impairment [Not Recovered/Not Resolved]
  - Injection site reaction [Unknown]
  - Injection site rash [Recovered/Resolved]
  - Injection site swelling [Recovered/Resolved]
